FAERS Safety Report 23884359 (Version 2)
Quarter: 2024Q4

REPORT INFORMATION
  Report Type: Spontaneous
  Country: US (occurrence: US)
  Receive Date: 20240522
  Receipt Date: 20241001
  Transmission Date: 20250115
  Serious: No
  Sender: CATALYST PHARMA
  Company Number: US-CATALYST PHARMACEUTICALS-US-CATA-24-00315

PATIENT
  Age: 14 Year
  Sex: Male
  Weight: 46.259 kg

DRUGS (14)
  1. AGAMREE [Suspect]
     Active Substance: VAMOROLONE
     Indication: Duchenne muscular dystrophy
     Dosage: 6.9 ML DAILY (280 MG ONCE A DAY)
     Route: 048
     Dates: start: 20240408, end: 20240414
  2. AMONDYS 45 [Concomitant]
     Active Substance: CASIMERSEN
     Indication: Duchenne muscular dystrophy
     Dosage: 2 MILLILITER, WEEKLY
     Route: 042
  3. ATENOLOL [Concomitant]
     Active Substance: ATENOLOL
     Indication: Cardiac disorder
     Dosage: 50 MG DAILY
     Route: 048
  4. BACLOFEN [Concomitant]
     Active Substance: BACLOFEN
     Indication: Muscle spasms
     Dosage: 10 MG DAILY
     Route: 065
  5. EMFLAZA [Concomitant]
     Active Substance: DEFLAZACORT
     Indication: Duchenne muscular dystrophy
     Dosage: 36 MILLIGRAM DAILY
     Route: 065
  6. EPLERENONE [Concomitant]
     Active Substance: EPLERENONE
     Indication: Cardiac disorder
     Dosage: 25 MG DAILY
     Route: 048
  7. FAMOTIDINE [Concomitant]
     Active Substance: FAMOTIDINE
     Indication: Gastrooesophageal reflux disease
     Dosage: 20 MG DAILY
     Route: 048
  8. IRON [Concomitant]
     Active Substance: IRON
     Indication: Hypovitaminosis
     Dosage: 325 MILLIGRAM DAILY
     Route: 065
  9. IRON [Concomitant]
     Active Substance: IRON
     Dosage: 15 MG ONCE A DAY
     Route: 048
  10. LISINOPRIL [Concomitant]
     Active Substance: LISINOPRIL
     Indication: Cardiac disorder
     Dosage: 10 MG DAILY
     Route: 048
  11. METFORMIN [Concomitant]
     Active Substance: METFORMIN HYDROCHLORIDE
     Indication: Diabetes mellitus
     Dosage: 500 MG, FOUR TIMES A DAY
     Route: 065
  12. METFORMIN [Concomitant]
     Active Substance: METFORMIN HYDROCHLORIDE
     Dosage: 1000 MILLIGRAM, BID
     Route: 048
  13. CALCIUM [Concomitant]
     Active Substance: CALCIUM
     Indication: Hypovitaminosis
     Dosage: 500 MG DAILY
     Route: 065
  14. VITAMIN D3 [Concomitant]
     Active Substance: CHOLECALCIFEROL
     Indication: Hypovitaminosis
     Dosage: 25 MICROGRAM DAILY
     Route: 048

REACTIONS (1)
  - Rash [Recovered/Resolved]

NARRATIVE: CASE EVENT DATE: 20240408
